FAERS Safety Report 6913264-7 (Version None)
Quarter: 2010Q3

REPORT INFORMATION
  Report Type: 
  Country: None (occurrence: None)
  Receive Date: 20100809
  Receipt Date: 20100730
  Transmission Date: 20110219
  Serious: Yes (Hospitalization)
  Sender: FDA-Public Use
  Company Number: US-BIOGENIDEC-2010BI026224

PATIENT
  Age: 40 Year
  Sex: Female

DRUGS (4)
  1. AVONEX [Suspect]
     Indication: MULTIPLE SCLEROSIS
     Route: 030
  2. AVONEX [Suspect]
     Route: 030
  3. XANAX [Concomitant]
  4. CELEXA [Concomitant]

REACTIONS (3)
  - ACCIDENTAL OVERDOSE [None]
  - HAEMATOMA [None]
  - MULTIPLE SCLEROSIS RELAPSE [None]
